FAERS Safety Report 16060023 (Version 1)
Quarter: 2019Q1

REPORT INFORMATION
  Report Type: Spontaneous
  Country: CN (occurrence: CN)
  Receive Date: 20190312
  Receipt Date: 20190312
  Transmission Date: 20190418
  Serious: Yes (Other)
  Sender: FDA-Public Use
  Company Number: CN-BAXTER-2019BAX004713

PATIENT
  Age: 44 Year
  Sex: Female
  Weight: 87 kg

DRUGS (4)
  1. 0.9% SODIUM CHLORIDE INJECTION [Suspect]
     Active Substance: SODIUM CHLORIDE
     Dosage: DOCETAXEL INJECTION 140 MG + 0.9% SODIUM CHLORIDE INJECTION 250 ML
     Route: 041
     Dates: start: 20190123, end: 20190123
  2. AISU [DOCETAXEL] [Suspect]
     Active Substance: DOCETAXEL
     Indication: BREAST CANCER FEMALE
     Dosage: DOCETAXEL INJECTION 140 MG + 0.9% SODIUM CHLORIDE INJECTION 250 ML
     Route: 041
     Dates: start: 20190123, end: 20190123
  3. 0.9% SODIUM CHLORIDE INJECTION [Suspect]
     Active Substance: SODIUM CHLORIDE
     Indication: MEDICATION DILUTION
     Dosage: 0.9 % NS 50ML+CYCLOPHOSPHAMIDE 1G
     Route: 041
     Dates: start: 20190123, end: 20190123
  4. ENDOXAN [Suspect]
     Active Substance: CYCLOPHOSPHAMIDE
     Indication: BREAST CANCER FEMALE
     Dosage: 0.9 % NS 50ML+CYCLOPHOSPHAMIDE 1G
     Route: 041
     Dates: start: 20190123, end: 20190123

REACTIONS (1)
  - Bone marrow failure [Recovered/Resolved]

NARRATIVE: CASE EVENT DATE: 20190130
